FAERS Safety Report 8858794 (Version 2)
Quarter: 2012Q4

REPORT INFORMATION
  Report Type: 
  Country: US (occurrence: US)
  Receive Date: 20121024
  Receipt Date: 20121026
  Transmission Date: 20130627
  Serious: Yes (Life-Threatening, Hospitalization)
  Sender: FDA-Public Use
  Company Number: US-JNJFOC-20121011239

PATIENT
  Age: 71 Year
  Sex: Female
  Weight: 68 kg

DRUGS (26)
  1. XARELTO [Suspect]
     Indication: CEREBROVASCULAR ACCIDENT PROPHYLAXIS
     Route: 048
     Dates: end: 20121010
  2. XARELTO [Suspect]
     Indication: ATRIAL FIBRILLATION
     Route: 048
     Dates: end: 20121010
  3. CELEBREX [Suspect]
     Indication: PRODUCT USED FOR UNKNOWN INDICATION
  4. DOCUSATE [Concomitant]
     Indication: CONSTIPATION
  5. ULTRAM [Concomitant]
     Indication: PAIN
     Route: 048
  6. ATROVENT [Concomitant]
     Indication: WHEEZING
     Route: 055
  7. CULTURELLE [Concomitant]
     Route: 048
  8. AUGMENTIN [Concomitant]
     Route: 048
  9. COREG [Concomitant]
     Route: 048
  10. CALCITRIOL [Concomitant]
     Route: 048
  11. DIOVAN [Concomitant]
     Route: 048
  12. ESCITALOPRAM [Concomitant]
     Route: 048
  13. ZOLPIDEM [Concomitant]
     Route: 048
  14. VICODIN [Concomitant]
     Route: 048
  15. LEVOTHYROXINE [Concomitant]
     Route: 048
  16. LEVOCETIRIZINE [Concomitant]
     Indication: HYPERSENSITIVITY
     Route: 048
  17. PRAVASTATIN [Concomitant]
     Route: 048
  18. NORVASC [Concomitant]
     Route: 048
  19. LANTUS [Concomitant]
     Route: 058
  20. NTG [Concomitant]
     Indication: CHEST PAIN
     Route: 060
  21. TORSEMIDE [Concomitant]
     Route: 048
  22. EPOETIN ALFA [Concomitant]
  23. ALENDRONATE [Concomitant]
     Route: 048
  24. CENTRUM SILVER [Concomitant]
     Route: 048
  25. TRAMADOL [Concomitant]
     Route: 048
  26. OMEPRAZOLE [Concomitant]

REACTIONS (1)
  - Gastrointestinal haemorrhage [Unknown]
